FAERS Safety Report 23795447 (Version 1)
Quarter: 2024Q2

REPORT INFORMATION
  Report Type: Spontaneous
  Country: US (occurrence: US)
  Receive Date: 20240429
  Receipt Date: 20240429
  Transmission Date: 20240716
  Serious: Yes (Other)
  Sender: FDA-Public Use
  Company Number: US-ABBVIE-5734508

PATIENT

DRUGS (2)
  1. HUMIRA [Suspect]
     Active Substance: ADALIMUMAB
     Indication: Product used for unknown indication
     Route: 058
  2. REMICADE [Suspect]
     Active Substance: INFLIXIMAB
     Indication: Product used for unknown indication
     Route: 065

REACTIONS (8)
  - Pyoderma gangrenosum [Unknown]
  - Urticaria chronic [Not Recovered/Not Resolved]
  - Erythema nodosum [Unknown]
  - Mechanical urticaria [Not Recovered/Not Resolved]
  - Blood immunoglobulin E increased [Not Recovered/Not Resolved]
  - Skin infection [Unknown]
  - Inflammatory bowel disease [Unknown]
  - Crohn^s disease [Unknown]
